FAERS Safety Report 5658825-0 (Version None)
Quarter: 2008Q1

REPORT INFORMATION
  Report Type: 
  Country: None (occurrence: None)
  Receive Date: 20080310
  Receipt Date: 20070523
  Transmission Date: 20080703
  Serious: Yes (Hospitalization)
  Sender: FDA-Public Use
  Company Number: US-BAYER-200711251BCC

PATIENT
  Age: 81 Year
  Sex: Male
  Weight: 73 kg

DRUGS (8)
  1. ALEVE [Suspect]
     Indication: ARTHRALGIA
     Route: 048
     Dates: start: 20070420, end: 20070421
  2. LIPITOR [Concomitant]
  3. GLYBURIDE [Concomitant]
  4. ACTINEL [Concomitant]
  5. DIGOXIN [Concomitant]
  6. ACTOS [Concomitant]
  7. LISINOPRIL [Concomitant]
  8. LASIX [Concomitant]

REACTIONS (7)
  - DIARRHOEA HAEMORRHAGIC [None]
  - FATIGUE [None]
  - GASTRIC HAEMORRHAGE [None]
  - GASTRIC ULCER [None]
  - HAEMATEMESIS [None]
  - PALLOR [None]
  - RECTAL HAEMORRHAGE [None]
